FAERS Safety Report 19101942 (Version 1)
Quarter: 2021Q2

REPORT INFORMATION
  Report Type: Spontaneous
  Country: GB (occurrence: GB)
  Receive Date: 20210407
  Receipt Date: 20210407
  Transmission Date: 20210717
  Serious: Yes (Other)
  Sender: FDA-Public Use
  Company Number: GB-SUN PHARMACEUTICAL INDUSTRIES LTD-2021R1-289807

PATIENT
  Age: 79 Year
  Sex: Female

DRUGS (2)
  1. IPRATROPIUM [Suspect]
     Active Substance: IPRATROPIUM
     Indication: LUNG ADENOCARCINOMA
     Dosage: 500 MICROGRAM
     Route: 065
  2. SALBUTAMOL [Concomitant]
     Active Substance: ALBUTEROL
     Indication: LUNG ADENOCARCINOMA
     Dosage: 2.5 MILLIGRAM

REACTIONS (2)
  - Pupil fixed [Recovered/Resolved]
  - Mydriasis [Unknown]
